FAERS Safety Report 15968603 (Version 2)
Quarter: 2019Q3

REPORT INFORMATION
  Report Type: Spontaneous
  Country: IE (occurrence: IE)
  Receive Date: 20190215
  Receipt Date: 20190704
  Transmission Date: 20191004
  Serious: Yes (Other)
  Sender: FDA-Public Use
  Company Number: IE-PFIZER INC-2019066282

PATIENT
  Age: 3 Year
  Sex: Female

DRUGS (1)
  1. GENOTROPIN [Suspect]
     Active Substance: SOMATROPIN
     Indication: CHRONIC KIDNEY DISEASE
     Dosage: 0.5 MG, EVERY NIGHT

REACTIONS (5)
  - Off label use [Unknown]
  - Ear infection [Unknown]
  - Anxiety [Unknown]
  - Lower respiratory tract infection [Unknown]
  - Product use in unapproved indication [Unknown]
